FAERS Safety Report 9271247 (Version 2)
Quarter: 2015Q2

REPORT INFORMATION
  Report Type: Spontaneous
  Country: US (occurrence: US)
  Receive Date: 20130506
  Receipt Date: 20150618
  Transmission Date: 20150821
  Serious: Yes (Congenital Anomaly, Other)
  Sender: FDA-Public Use
  Company Number: US-ELI_LILLY_AND_COMPANY-US201304008015

PATIENT
  Age: 0 Day

DRUGS (6)
  1. AMOX                               /00249601/ [Concomitant]
     Dosage: 500 MG, TID
     Route: 064
  2. TERBUTALINE [Concomitant]
     Active Substance: TERBUTALINE
     Indication: UTERINE CONTRACTIONS DURING PREGNANCY
     Dosage: 2.5 DF, OTHER
     Route: 064
  3. PROZAC [Suspect]
     Active Substance: FLUOXETINE HYDROCHLORIDE
     Dosage: 20 MG, QD
     Route: 064
  4. TYLENOL [Concomitant]
     Active Substance: ACETAMINOPHEN
     Dosage: 1 DF, PRN
     Route: 064
  5. PROGESTERONE. [Concomitant]
     Active Substance: PROGESTERONE
     Dosage: 50 MG, BID
     Route: 064
  6. PROZAC [Suspect]
     Active Substance: FLUOXETINE HYDROCHLORIDE
     Indication: DEPRESSION
     Dosage: 10 MG, QD
     Route: 064

REACTIONS (9)
  - Cleft palate [Unknown]
  - Premature baby [Unknown]
  - Oligohydramnios [Unknown]
  - Foetal growth restriction [Unknown]
  - Foetal exposure timing unspecified [Unknown]
  - Congenital skin dimples [Unknown]
  - Otitis media chronic [Unknown]
  - Hyperbilirubinaemia [Unknown]
  - Dacryostenosis congenital [Unknown]

NARRATIVE: CASE EVENT DATE: 19930916
